FAERS Safety Report 15438558 (Version 1)
Quarter: 2018Q4

REPORT INFORMATION
  Report Type: Spontaneous
  Country: FR (occurrence: FR)
  Receive Date: 20180928
  Receipt Date: 20180928
  Transmission Date: 20190204
  Serious: Yes (Other)
  Sender: FDA-Public Use
  Company Number: FR-AUROBINDO-AUR-APL-2018-047564

PATIENT
  Age: 49 Year
  Sex: Female

DRUGS (2)
  1. ETOPOSIDE. [Suspect]
     Active Substance: ETOPOSIDE
     Indication: NEUROENDOCRINE CARCINOMA
     Dosage: UNK
     Route: 065
  2. CARBOPLATIN. [Suspect]
     Active Substance: CARBOPLATIN
     Indication: NEUROENDOCRINE CARCINOMA
     Dosage: UNK
     Route: 065

REACTIONS (1)
  - Malignant neoplasm progression [Unknown]
